FAERS Safety Report 15020367 (Version 1)
Quarter: 2018Q2

REPORT INFORMATION
  Report Type: Spontaneous
  Country: US (occurrence: US)
  Receive Date: 20180618
  Receipt Date: 20180618
  Transmission Date: 20180711
  Serious: Yes (Hospitalization, Other)
  Sender: FDA-Public Use
  Company Number: US-ZYDUS-020512

PATIENT
  Age: 59 Year
  Sex: Male

DRUGS (1)
  1. CLONIDINE. [Suspect]
     Active Substance: CLONIDINE
     Indication: PRODUCT USED FOR UNKNOWN INDICATION
     Route: 048

REACTIONS (10)
  - Transcription medication error [Unknown]
  - Drug dispensing error [Unknown]
  - Incorrect dose administered [Unknown]
  - Hyporesponsive to stimuli [Unknown]
  - Hypoxia [Unknown]
  - Depressed level of consciousness [Recovered/Resolved]
  - Hypotension [Unknown]
  - Toxicity to various agents [Unknown]
  - Accidental overdose [Unknown]
  - Lethargy [Unknown]
